FAERS Safety Report 18364193 (Version 2)
Quarter: 2020Q4

REPORT INFORMATION
  Report Type: Spontaneous
  Country: IN (occurrence: IN)
  Receive Date: 20201009
  Receipt Date: 20201016
  Transmission Date: 20210114
  Serious: Yes (Life-Threatening, Hospitalization, Other)
  Sender: FDA-Public Use
  Company Number: IN-MSNLABS-2020MSNLIT00377

PATIENT
  Age: 44 Year
  Sex: Male

DRUGS (7)
  1. MOXIFLOXACIN TABLETS 400 MG [Suspect]
     Active Substance: MOXIFLOXACIN
     Indication: DISSEMINATED TUBERCULOSIS
     Dosage: UNKNOWN
     Route: 065
  2. ETHAMBUTOL [Concomitant]
     Active Substance: ETHAMBUTOL HYDROCHLORIDE
     Indication: TUBERCULOSIS
     Dosage: UNKNOWN
     Route: 065
  3. ISONIAZID. [Concomitant]
     Active Substance: ISONIAZID
     Indication: TUBERCULOSIS
     Dosage: UNKNOWN
     Route: 065
  4. PYRIDOXINE [Concomitant]
     Active Substance: PYRIDOXINE
     Indication: TUBERCULOSIS
     Dosage: UNKNOWN
     Route: 065
  5. MOXIFLOXACIN TABLETS 400 MG [Suspect]
     Active Substance: MOXIFLOXACIN
     Indication: TUBERCULOSIS
  6. AMIKACIN. [Concomitant]
     Active Substance: AMIKACIN
     Indication: TUBERCULOSIS
     Dosage: UNKNOWN
     Route: 042
  7. ETHIONAMIDE [Concomitant]
     Active Substance: ETHIONAMIDE
     Indication: TUBERCULOSIS
     Dosage: UNKNOWN
     Route: 065

REACTIONS (1)
  - Toxic encephalopathy [Recovered/Resolved]
